FAERS Safety Report 5252388-X (Version None)
Quarter: 2007Q1

REPORT INFORMATION
  Report Type: 
  Country: None (occurrence: None)
  Receive Date: 20070301
  Receipt Date: 20061205
  Transmission Date: 20070707
  Serious: Yes (Life-Threatening, Hospitalization)
  Sender: FDA-Public Use
  Company Number: US-BRISTOL-MYERS SQUIBB COMPANY-13546098

PATIENT
  Age: 84 Year
  Sex: Female
  Weight: 51 kg

DRUGS (10)
  1. TAXOL [Suspect]
     Indication: UTERINE CANCER
     Route: 042
     Dates: start: 20061003, end: 20061003
  2. CARBOPLATIN [Concomitant]
  3. DECADRON [Concomitant]
     Route: 042
  4. ZOFRAN [Concomitant]
     Route: 042
  5. PEPCID [Concomitant]
     Route: 042
  6. ATIVAN [Concomitant]
     Route: 042
  7. ASPIRIN [Concomitant]
  8. PLAVIX [Concomitant]
  9. NITROGLYCERIN [Concomitant]
  10. LOVENOX [Concomitant]

REACTIONS (1)
  - DYSPNOEA [None]
